FAERS Safety Report 4515975-X (Version None)
Quarter: 2004Q4

REPORT INFORMATION
  Report Type: 
  Country: None (occurrence: None)
  Receive Date: 20041129
  Receipt Date: 20041108
  Transmission Date: 20050328
  Serious: Yes (Hospitalization, Disabling)
  Sender: FDA-Public Use
  Company Number: 2004235233FI

PATIENT
  Age: 37 Year
  Sex: Female

DRUGS (3)
  1. BEXTRA [Suspect]
     Indication: BACK PAIN
     Dosage: 40 MG (1 IN 1 D), ORAL; 20 MG (1 IN 1 D) , ORAL; 40 MG (1 IN 1 D), ORAL
     Route: 048
     Dates: start: 20040906, end: 20040910
  2. BEXTRA [Suspect]
     Indication: BACK PAIN
     Dosage: 40 MG (1 IN 1 D), ORAL; 20 MG (1 IN 1 D) , ORAL; 40 MG (1 IN 1 D), ORAL
     Route: 048
     Dates: start: 20040911, end: 20040916
  3. BEXTRA [Suspect]
     Indication: BACK PAIN
     Dosage: 40 MG (1 IN 1 D), ORAL; 20 MG (1 IN 1 D) , ORAL; 40 MG (1 IN 1 D), ORAL
     Route: 048
     Dates: start: 20040917, end: 20040919

REACTIONS (13)
  - BACK PAIN [None]
  - BLISTER [None]
  - DYSAESTHESIA [None]
  - EAR PAIN [None]
  - HAEMATURIA [None]
  - HERPES ZOSTER [None]
  - NECK PAIN [None]
  - NEUROPATHIC PAIN [None]
  - PAIN IN EXTREMITY [None]
  - PAIN OF SKIN [None]
  - STEVENS-JOHNSON SYNDROME [None]
  - URINARY INCONTINENCE [None]
  - URTICARIA [None]
